FAERS Safety Report 4698910-3 (Version None)
Quarter: 2005Q2

REPORT INFORMATION
  Report Type: 
  Country: None (occurrence: None)
  Receive Date: 20050622
  Receipt Date: 20050622
  Transmission Date: 20051028
  Serious: Yes (Life-Threatening, Hospitalization)
  Sender: FDA-Public Use
  Company Number: None

PATIENT
  Age: 57 Year
  Sex: Male
  Weight: 117.5 kg

DRUGS (1)
  1. SIMVASTATIN [Suspect]

REACTIONS (3)
  - HAEMATOMA [None]
  - RENAL FAILURE ACUTE [None]
  - RHABDOMYOLYSIS [None]
